FAERS Safety Report 13504247 (Version 1)
Quarter: 2017Q2

REPORT INFORMATION
  Report Type: Spontaneous
  Country: FR (occurrence: FR)
  Receive Date: 20170502
  Receipt Date: 20170502
  Transmission Date: 20170830
  Serious: Yes (Hospitalization)
  Sender: FDA-Public Use
  Company Number: FR-PFIZER INC-2017188737

PATIENT
  Age: 85 Year
  Sex: Male

DRUGS (30)
  1. LASILIX [Suspect]
     Active Substance: FUROSEMIDE
     Dosage: 40 MG, 2X/DAY
     Route: 042
  2. PLAVIX [Concomitant]
     Active Substance: CLOPIDOGREL BISULFATE
     Dosage: 75 MG, ONCE DAILY
     Route: 048
  3. AUGMENTIN [Concomitant]
     Active Substance: AMOXICILLIN\CLAVULANATE POTASSIUM
     Dosage: UNK
     Route: 048
     Dates: start: 20131226
  4. HUMIRA [Suspect]
     Active Substance: ADALIMUMAB
     Indication: PSORIASIS
     Dosage: 80 MG, WEEKLY
     Route: 058
     Dates: start: 20131017, end: 20131024
  5. JOSIR LP [Concomitant]
     Active Substance: TAMSULOSIN
     Dosage: 0.4 MG, ONCE DAILY
     Route: 048
  6. HEPARIN [Concomitant]
     Active Substance: HEPARIN SODIUM
     Dosage: 9600 IU, DAILY
     Route: 058
  7. DAIVOBET [Concomitant]
     Active Substance: BETAMETHASONE DIPROPIONATE\CALCIPOTRIENE
     Dosage: UNK
  8. RAMIPRIL. [Suspect]
     Active Substance: RAMIPRIL
     Dosage: UNK
     Route: 065
  9. ETANERCEPT [Suspect]
     Active Substance: ETANERCEPT
     Indication: PSORIASIS
     Dosage: 50 MG, WEEKLY
     Route: 058
     Dates: start: 200904, end: 201009
  10. INEXIUM [Concomitant]
     Active Substance: ESOMEPRAZOLE
     Dosage: 20 MG, ONCE DAILY
  11. ZOPICLONE [Concomitant]
     Active Substance: ZOPICLONE
     Dosage: 7.5 MG, ONCE DAILY
     Route: 048
  12. KAYEXALATE [Concomitant]
     Active Substance: SODIUM POLYSTYRENE SULFONATE
     Dosage: UNK, ONCE DAILY
     Route: 048
  13. HUMIRA [Suspect]
     Active Substance: ADALIMUMAB
     Dosage: 40 MG, EVERY 2 WEEKS
     Route: 058
     Dates: start: 20131024
  14. HUMIRA [Suspect]
     Active Substance: ADALIMUMAB
     Dosage: 40 MG, EVERY 2 WEEKS
     Route: 058
     Dates: start: 20140410, end: 20140410
  15. NITRENDIPINE [Concomitant]
     Active Substance: NITRENDIPINE
     Dosage: 20 MG, ONCE DAILY
     Route: 048
  16. LORATADINE. [Concomitant]
     Active Substance: LORATADINE
     Dosage: 10 MG, DAILY
     Route: 048
  17. NATISPRAY [Concomitant]
     Active Substance: NITROGLYCERIN
     Indication: ANGINA PECTORIS
     Dosage: 2 PUFFS
     Route: 048
  18. ETANERCEPT [Suspect]
     Active Substance: ETANERCEPT
     Dosage: 50 MG, ONCE WEEKLY
     Route: 058
     Dates: start: 201012, end: 201209
  19. AMLOR [Concomitant]
     Active Substance: AMLODIPINE BESYLATE
     Dosage: 5 MG, TWICE DAILY
     Route: 048
  20. KARDEGIC [Concomitant]
     Active Substance: ASPIRIN LYSINE
     Dosage: 75 MG, ONCE DAILY
     Route: 048
  21. DIFFU K [Concomitant]
     Active Substance: POTASSIUM CHLORIDE
     Dosage: 1800 MG, THRICE DAILY
     Route: 048
  22. ETANERCEPT [Suspect]
     Active Substance: ETANERCEPT
     Dosage: 50 MG, TWICE WEEKLY
     Route: 058
     Dates: start: 20101210, end: 201012
  23. CRESTOR [Concomitant]
     Active Substance: ROSUVASTATIN CALCIUM
     Dosage: 5 MG, ONCE DAILY
     Route: 048
  24. TARDYFERON [Concomitant]
     Active Substance: FERROUS SULFATE
     Dosage: 80 MG, 2X/DAY
     Route: 048
  25. PREVISCAN [Concomitant]
     Active Substance: FLUINDIONE
     Dosage: 20 MG, ONCE DAILY
     Route: 048
  26. LASILIX [Suspect]
     Active Substance: FUROSEMIDE
     Dosage: 80 MG, 3 TIMES A DAY
     Route: 042
  27. DUOPLAVIN [Concomitant]
     Active Substance: ASPIRIN\CLOPIDOGREL
     Dosage: UNK, ONCE DAILY
  28. TADENAN [Concomitant]
     Active Substance: PYGEUM
     Dosage: 50 MG, TWICE DAILY
     Route: 048
  29. NEBIVOLOL. [Concomitant]
     Active Substance: NEBIVOLOL
     Dosage: 2.5 MG, ONCE DAILY
     Route: 048
  30. EUPRESSYL [Concomitant]
     Active Substance: URAPIDIL
     Dosage: 30 MG, ONCE DAILY
     Route: 048

REACTIONS (14)
  - Peritoneal dialysis complication [Recovering/Resolving]
  - Acute coronary syndrome [Unknown]
  - Acute kidney injury [Unknown]
  - Pulmonary oedema [Recovering/Resolving]
  - Aortic valve stenosis [Unknown]
  - Syncope [Unknown]
  - Atrioventricular block [Unknown]
  - Eczema [Unknown]
  - Myocardial infarction [Unknown]
  - Pulmonary embolism [Unknown]
  - Dehydration [Recovering/Resolving]
  - Condition aggravated [Unknown]
  - Pneumonia [Unknown]
  - Dry skin [Unknown]

NARRATIVE: CASE EVENT DATE: 20150110
